FAERS Safety Report 6898287-9 (Version None)
Quarter: 2010Q3

REPORT INFORMATION
  Report Type: 
  Country: None (occurrence: None)
  Receive Date: 20100802
  Receipt Date: 20070924
  Transmission Date: 20110219
  Serious: Yes (Other)
  Sender: FDA-Public Use
  Company Number: US-PFIZER INC-2007072056

PATIENT
  Sex: Female
  Weight: 107.27 kg

DRUGS (3)
  1. LYRICA [Suspect]
     Indication: NEURALGIA
     Dates: start: 20070101
  2. AMITRIPTYLINE HYDROCHLORIDE [Concomitant]
  3. VITAMINS [Concomitant]

REACTIONS (3)
  - DRUG INEFFECTIVE [None]
  - INCREASED APPETITE [None]
  - WEIGHT INCREASED [None]
